FAERS Safety Report 24743239 (Version 1)
Quarter: 2024Q4

REPORT INFORMATION
  Report Type: Spontaneous
  Country: US (occurrence: None)
  Receive Date: 20241216
  Receipt Date: 20241216
  Transmission Date: 20250115
  Serious: Yes (Other)
  Sender: Public
  Company Number: None

PATIENT
  Age: 19 Year
  Sex: Male
  Weight: 78.3 kg

DRUGS (1)
  1. ALTUVIIIO [Suspect]
     Active Substance: EFANESOCTOCOG ALFA
     Indication: Factor VIII deficiency
     Dosage: 4154 IU INTERNATIONAL UNIT(S) ONCE WEEKLY INTRAVENOUS
     Route: 042
     Dates: start: 20230501

REACTIONS (2)
  - Incorrect route of product administration [None]
  - Loss of consciousness [None]

NARRATIVE: CASE EVENT DATE: 20241210
